FAERS Safety Report 9681035 (Version 1)
Quarter: 2013Q4

REPORT INFORMATION
  Report Type: Spontaneous
  Country: US (occurrence: None)
  Receive Date: 20131108
  Receipt Date: 20131108
  Transmission Date: 20140711
  Serious: Yes (Hospitalization)
  Sender: FDA-Public Use
  Company Number: None

PATIENT
  Age: 25 Year
  Sex: Female
  Weight: 117.03 kg

DRUGS (5)
  1. NICOTROL TABLET 10MG CARTRIDGE (4MG DELIVERED) PFIZER [Suspect]
     Indication: SMOKING CESSATION THERAPY
     Dosage: 10 MG CARTRIDGE (1-4/DAY)
     Dates: start: 20130613, end: 20130730
  2. PRENATAL VITAMIN WITH FOLIC ACID [Concomitant]
  3. INSULIN -HUMALOG [Concomitant]
  4. INSULIN - NPH [Concomitant]
  5. ALBUTERON INHALER [Concomitant]

REACTIONS (3)
  - Neonatal respiratory distress syndrome [None]
  - Oxygen saturation decreased [None]
  - Exposure during pregnancy [None]
